FAERS Safety Report 7603038-6 (Version None)
Quarter: 2011Q3

REPORT INFORMATION
  Report Type: 
  Country: None (occurrence: None)
  Receive Date: 20110712
  Receipt Date: 20110712
  Transmission Date: 20111222
  Serious: Yes (Other)
  Sender: FDA-Public Use
  Company Number: None

PATIENT
  Age: 38 Year
  Sex: Female
  Weight: 79.378 kg

DRUGS (2)
  1. TOPIRAMATE [Suspect]
     Indication: MIGRAINE
     Dosage: 100 MG 2X'S DAY
     Route: 048
     Dates: start: 20100501, end: 20110711
  2. TOPIRAMATE [Suspect]
     Indication: CONVULSION
     Dosage: 100 MG 2X'S DAY
     Route: 048
     Dates: start: 20100501, end: 20110711

REACTIONS (3)
  - PRODUCT SUBSTITUTION ISSUE [None]
  - MIGRAINE [None]
  - CONVULSION [None]
